FAERS Safety Report 8978967 (Version 1)
Quarter: 2012Q4

REPORT INFORMATION
  Report Type: 
  Country: US (occurrence: US)
  Receive Date: 20121221
  Receipt Date: 20121221
  Transmission Date: 20130627
  Serious: Yes (Other)
  Sender: FDA-Public Use
  Company Number: US-BAYER-2012-132630

PATIENT
  Sex: Female

DRUGS (2)
  1. MIRENA [Suspect]
     Dosage: 20 mcg/24hr, CONT
     Route: 015
     Dates: start: 200701
  2. MIRENA [Suspect]
     Dosage: 20 mcg/24hr, CONT
     Route: 015
     Dates: start: 201108

REACTIONS (7)
  - Vaginal haemorrhage [None]
  - Vaginal haemorrhage [None]
  - Amenorrhoea [None]
  - Amenorrhoea [None]
  - Menorrhagia [None]
  - Polymenorrhoea [None]
  - Menorrhagia [None]
